FAERS Safety Report 4449583-6 (Version None)
Quarter: 2004Q3

REPORT INFORMATION
  Report Type: 
  Country: None (occurrence: None)
  Receive Date: 20040913
  Receipt Date: 20040902
  Transmission Date: 20050211
  Serious: Yes (Other)
  Sender: FDA-Public Use
  Company Number: HQWYE822502SEP04

PATIENT
  Age: 49 Year
  Sex: Male

DRUGS (4)
  1. CORDARONE [Suspect]
     Indication: ARRHYTHMIA
     Dosage: 900 MG 1X PER 48 HR  INTRAVENOUS
     Route: 042
     Dates: start: 20040807, end: 20040809
  2. STREPTASE [Concomitant]
  3. MONOCOR (BISOPROLOL) [Concomitant]
  4. HJERTEMAGNYL (ACETYLSALICYLIC ACID/MAGNESIUM OXIDE HEAVY) [Concomitant]

REACTIONS (1)
  - HEPATITIS [None]
